FAERS Safety Report 4715156-0 (Version None)
Quarter: 2005Q3

REPORT INFORMATION
  Report Type: 
  Country: None (occurrence: None)
  Receive Date: 20050715
  Receipt Date: 20050707
  Transmission Date: 20060218
  Serious: Yes (Hospitalization)
  Sender: FDA-Public Use
  Company Number: JP-GLAXOSMITHKLINE-B0387066A

PATIENT
  Age: 57 Year
  Sex: Male

DRUGS (6)
  1. FLOLAN [Suspect]
     Indication: PULMONARY HYPERTENSION
     Route: 042
     Dates: start: 20010516
  2. WARFARIN POTASSIUM [Concomitant]
     Route: 048
  3. FUROSEMIDE [Concomitant]
     Route: 048
  4. DIGOXIN [Concomitant]
     Route: 048
  5. TAMBOCOR [Concomitant]
     Route: 048
  6. CIBENOL [Concomitant]
     Route: 048

REACTIONS (3)
  - ATRIAL FLUTTER [None]
  - CATHETER RELATED INFECTION [None]
  - PALPITATIONS [None]
